FAERS Safety Report 13642695 (Version 1)
Quarter: 2017Q2

REPORT INFORMATION
  Report Type: Spontaneous
  Country: US (occurrence: US)
  Receive Date: 20170612
  Receipt Date: 20170612
  Transmission Date: 20170830
  Serious: No
  Sender: FDA-Public Use
  Company Number: US-SEPTODONT-201603768

PATIENT
  Age: 4 Decade
  Sex: Female
  Weight: 54 kg

DRUGS (1)
  1. SEPTOCAINE AND EPINEPHRINE [Suspect]
     Active Substance: ARTICAINE HYDROCHLORIDE\EPINEPHRINE BITARTRATE
     Indication: LOCAL ANAESTHESIA
     Dosage: TRADITIONAL MENTAL NERVE/FORAMEN INFILTRATION TECHNIQUE USED WITH 30G SHORT NEEDLE
     Route: 004
     Dates: start: 201611, end: 201611

REACTIONS (1)
  - Paraesthesia [Not Recovered/Not Resolved]

NARRATIVE: CASE EVENT DATE: 201611
